FAERS Safety Report 6202626-1 (Version None)
Quarter: 2009Q2

REPORT INFORMATION
  Report Type: 
  Country: None (occurrence: None)
  Receive Date: 20090526
  Receipt Date: 20090520
  Transmission Date: 20091009
  Serious: Yes (Other)
  Sender: FDA-Public Use
  Company Number: US-SANOFI-SYNTHELABO-A03200902209

PATIENT
  Sex: Male

DRUGS (7)
  1. PLAVIX [Suspect]
     Indication: STENT PLACEMENT
     Route: 048
     Dates: start: 20050101, end: 20080801
  2. PLAVIX [Suspect]
     Indication: CEREBROVASCULAR ACCIDENT
     Route: 048
     Dates: start: 20050101, end: 20080801
  3. PLAVIX [Suspect]
     Route: 048
     Dates: start: 20080101, end: 20081101
  4. PLAVIX [Suspect]
     Route: 048
     Dates: start: 20080101, end: 20081101
  5. PLAVIX [Suspect]
     Route: 048
     Dates: start: 20090201
  6. PLAVIX [Suspect]
     Route: 048
     Dates: start: 20090201
  7. ASPIRIN [Concomitant]
     Indication: DRUG USE FOR UNKNOWN INDICATION
     Route: 065

REACTIONS (2)
  - CAROTID ARTERY OCCLUSION [None]
  - CHEST PAIN [None]
